FAERS Safety Report 7109578-0 (Version None)
Quarter: 2010Q4

REPORT INFORMATION
  Report Type: 
  Country: None (occurrence: None)
  Receive Date: 20101118
  Receipt Date: 20101110
  Transmission Date: 20110411
  Serious: Yes (Hospitalization)
  Sender: FDA-Public Use
  Company Number: US-BIOGENIDEC-2010BI039623

PATIENT
  Age: 66 Year
  Sex: Female

DRUGS (3)
  1. AVONEX [Suspect]
     Indication: MULTIPLE SCLEROSIS
     Route: 030
     Dates: start: 20020123, end: 20080324
  2. AVONEX [Suspect]
     Route: 030
     Dates: start: 20090417, end: 20090424
  3. AVONEX [Suspect]
     Route: 030
     Dates: start: 20100809

REACTIONS (1)
  - CONVULSION [None]
